FAERS Safety Report 8668052 (Version 2)
Quarter: 2013Q1

REPORT INFORMATION
  Report Type: Spontaneous
  Country: DK (occurrence: DK)
  Receive Date: 20120717
  Receipt Date: 20130115
  Transmission Date: 20140127
  Serious: Yes (Other)
  Sender: FDA-Public Use
  Company Number: DK-PFIZER INC-2012167584

PATIENT
  Age: 59 Year
  Sex: Female

DRUGS (4)
  1. CHAMPIX [Suspect]
     Indication: EX-TOBACCO USER
     Dosage: UNK
     Dates: start: 20090112, end: 2009
  2. CHAMPIX [Suspect]
     Indication: SMOKING CESSATION THERAPY
  3. SIMVASTATIN [Concomitant]
     Dosage: 40 MG, UNK
  4. HJERTEMAGNYL ^NYCOMED^ [Concomitant]
     Dosage: 75 MG, UNK

REACTIONS (4)
  - Anosmia [Not Recovered/Not Resolved]
  - Ageusia [Not Recovered/Not Resolved]
  - Depression [Unknown]
  - Suicidal ideation [Unknown]
